FAERS Safety Report 4754709-0 (Version None)
Quarter: 2005Q3

REPORT INFORMATION
  Report Type: 
  Country: None (occurrence: None)
  Receive Date: 20050825
  Receipt Date: 20050825
  Transmission Date: 20060218
  Serious: No
  Sender: FDA-Public Use
  Company Number: None

PATIENT
  Age: 42 Year
  Sex: Male
  Weight: 79.3795 kg

DRUGS (1)
  1. PAXIL [Suspect]
     Indication: ANXIETY
     Dosage: 10 MILLIGRAMS    ONCE DAILY  PO
     Route: 048
     Dates: start: 19980101, end: 20020101

REACTIONS (6)
  - ADRENAL DISORDER [None]
  - DRUG WITHDRAWAL SYNDROME [None]
  - HYPERADRENALISM [None]
  - MUSCLE CONTRACTIONS INVOLUNTARY [None]
  - NERVOUS SYSTEM DISORDER [None]
  - TINNITUS [None]
